FAERS Safety Report 18479565 (Version 1)
Quarter: 2020Q4

REPORT INFORMATION
  Report Type: Spontaneous
  Country: US (occurrence: US)
  Receive Date: 20201109
  Receipt Date: 20201109
  Transmission Date: 20210114
  Serious: No
  Sender: FDA-Public Use
  Company Number: US-MYLANLABS-2020M1078828

PATIENT
  Sex: Male
  Weight: 87 kg

DRUGS (1)
  1. WIXELA INHUB [Suspect]
     Active Substance: FLUTICASONE PROPIONATE\SALMETEROL XINAFOATE
     Indication: CHRONIC OBSTRUCTIVE PULMONARY DISEASE
     Dosage: TWICE DAILY (ONE PUFF TWICE DAILY)1, 250/50 MCG
     Route: 055

REACTIONS (2)
  - Device issue [Recovering/Resolving]
  - Product dose omission issue [Unknown]
